FAERS Safety Report 8375164-8 (Version None)
Quarter: 2012Q2

REPORT INFORMATION
  Report Type: 
  Country: None (occurrence: None)
  Receive Date: 20120521
  Receipt Date: 20120508
  Transmission Date: 20120825
  Serious: Yes (Hospitalization)
  Sender: FDA-Public Use
  Company Number: MA-MYLANLABS-2012S1009656

PATIENT
  Age: 25 Year
  Sex: Male

DRUGS (3)
  1. PENICILLIN G [Concomitant]
     Indication: TETANUS
     Route: 065
  2. VANCOMYCIN [Suspect]
     Indication: STAPHYLOCOCCAL INFECTION
     Route: 065
  3. BACLOFEN [Concomitant]
     Indication: TETANUS
     Route: 065

REACTIONS (3)
  - DRUG RASH WITH EOSINOPHILIA AND SYSTEMIC SYMPTOMS [None]
  - RESPIRATORY DISTRESS [None]
  - INTERSTITIAL LUNG DISEASE [None]
